FAERS Safety Report 9872319 (Version 1)
Quarter: 2014Q1

REPORT INFORMATION
  Report Type: Spontaneous
  Country: DE (occurrence: DE)
  Receive Date: 20140205
  Receipt Date: 20140205
  Transmission Date: 20141002
  Serious: Yes (Other)
  Sender: FDA-Public Use
  Company Number: DE-ROCHE-1339123

PATIENT
  Age: 42 Year
  Sex: Female
  Weight: 59 kg

DRUGS (8)
  1. PERJETA [Suspect]
     Indication: BREAST CANCER METASTATIC
     Dosage: LOADING DOSE
     Route: 042
     Dates: start: 20130515
  2. PERJETA [Suspect]
     Route: 042
     Dates: start: 201306
  3. HERCEPTIN [Concomitant]
     Indication: BREAST CANCER METASTATIC
     Dosage: LOADING DOSE
     Route: 042
     Dates: start: 20130515
  4. HERCEPTIN [Concomitant]
     Route: 042
     Dates: start: 201306
  5. HERCEPTIN [Concomitant]
     Route: 042
     Dates: end: 201003
  6. XGEVA [Concomitant]
     Indication: METASTASES TO BONE
     Route: 058
     Dates: start: 20121127
  7. DOCETAXEL [Concomitant]
     Indication: BREAST CANCER METASTATIC
     Route: 042
     Dates: start: 20130515, end: 20130828
  8. DOCETAXEL [Concomitant]
     Route: 065
     Dates: end: 201003

REACTIONS (5)
  - Pericardial effusion [Unknown]
  - Pleural effusion [Unknown]
  - Chills [Unknown]
  - Feeling cold [Not Recovered/Not Resolved]
  - Metastases to central nervous system [Unknown]
